FAERS Safety Report 8774627 (Version 5)
Quarter: 2012Q4

REPORT INFORMATION
  Report Type: Report from Study
  Country: RU (occurrence: RU)
  Receive Date: 20120907
  Receipt Date: 20121031
  Transmission Date: 20130627
  Serious: Yes (Other)
  Sender: FDA-Public Use
  Company Number: RU-009507513-2012SP031717

PATIENT
  Age: 51 Year
  Sex: Female
  Weight: 73.5 kg

DRUGS (22)
  1. BLINDED BOCEPREVIR [Suspect]
     Indication: HEPATITIS C
     Dosage: 2400 milligrams daily
     Route: 048
     Dates: start: 20120327
  2. BLINDED PEGINTERFERON ALFA-2B [Suspect]
     Indication: HEPATITIS C
     Dosage: 2400 milligrams daily
     Route: 048
     Dates: start: 20120327
  3. BLINDED PLACEBO [Suspect]
     Indication: HEPATITIS C
     Dosage: 2400 milligrams daily
     Route: 048
     Dates: start: 20120327
  4. BLINDED POST TRIAL THERAPY [Suspect]
     Indication: HEPATITIS C
     Dosage: 2400 milligrams daily
     Route: 048
     Dates: start: 20120327
  5. BLINDED PRE TRIAL THERAPY [Suspect]
     Indication: HEPATITIS C
     Dosage: 2400 milligrams daily
     Route: 048
     Dates: start: 20120327
  6. BLINDED RIBAVIRIN [Suspect]
     Indication: HEPATITIS C
     Dosage: 2400 milligrams daily
     Route: 048
     Dates: start: 20120327
  7. BLINDED BOCEPREVIR [Suspect]
     Dosage: 1800 mg per day, UNK
     Route: 048
     Dates: start: 20121004, end: 20121015
  8. BLINDED PEGINTERFERON ALFA-2B [Suspect]
     Dosage: 1800 mg per day, UNK
     Route: 048
     Dates: start: 20121004, end: 20121015
  9. BLINDED PLACEBO [Suspect]
     Dosage: 1800 mg per day, UNK
     Route: 048
     Dates: start: 20121004, end: 20121015
  10. BLINDED POST TRIAL THERAPY [Suspect]
     Dosage: 1800 mg per day, UNK
     Route: 048
     Dates: start: 20121004, end: 20121015
  11. BLINDED PRE TRIAL THERAPY [Suspect]
     Dosage: 1800 mg per day, UNK
     Route: 048
     Dates: start: 20121004, end: 20121015
  12. BLINDED RIBAVIRIN [Suspect]
     Dosage: 1800 mg per day, UNK
     Route: 048
     Dates: start: 20121004, end: 20121015
  13. RIBAVIRIN [Suspect]
     Indication: HEPATITIS C
     Dosage: 600 mg qam, 400 mg qpm initial dose
     Route: 048
     Dates: start: 20120227
  14. RIBAVIRIN [Suspect]
     Dosage: 200 mg qam, 400 mg qpm
     Route: 048
     Dates: end: 20121004
  15. RIBAVIRIN [Suspect]
     Dosage: 400 mg, qd
     Route: 048
     Dates: start: 20121004, end: 20121015
  16. PEGINTRON [Suspect]
     Indication: HEPATITIS C
     Dosage: 120 Microgram, 1 injection qw
     Route: 058
     Dates: start: 20120227
  17. PEGINTRON [Suspect]
     Dosage: 96 Microgram, qw
     Route: 058
     Dates: start: 20120423
  18. PEGINTRON [Suspect]
     Dosage: 72 mcg,qw
     Route: 058
     Dates: start: 20120507, end: 20120604
  19. PEGINTRON [Suspect]
     Dosage: 96 mcg,qw
     Route: 058
     Dates: start: 20120611, end: 20120618
  20. PEGINTRON [Suspect]
     Dosage: 72 UNK, UNK
     Route: 058
     Dates: start: 20120625, end: 20120820
  21. PEGINTRON [Suspect]
     Dosage: 96 UNK, UNK
     Route: 058
     Dates: start: 20120903, end: 20121001
  22. PEGINTRON [Suspect]
     Dosage: 96 UNK, UNK
     Route: 058
     Dates: start: 20121015

REACTIONS (3)
  - Neutropenia [Recovered/Resolved]
  - Neutropenia [Recovered/Resolved]
  - Neutropenia [Recovered/Resolved]
